FAERS Safety Report 21848711 (Version 1)
Quarter: 2023Q1

REPORT INFORMATION
  Report Type: Spontaneous
  Country: FR (occurrence: FR)
  Receive Date: 20230111
  Receipt Date: 20230111
  Transmission Date: 20230418
  Serious: Yes (Hospitalization)
  Sender: FDA-Public Use
  Company Number: None

PATIENT
  Age: 30 Year
  Sex: Female

DRUGS (8)
  1. OXYCODONE HYDROCHLORIDE [Suspect]
     Active Substance: OXYCODONE HYDROCHLORIDE
     Indication: Withdrawal syndrome
     Dosage: UNKNOWN
     Route: 065
     Dates: start: 202209
  2. TRAMADOL [Suspect]
     Active Substance: TRAMADOL
     Indication: Poisoning deliberate
     Dosage: 50 MILLIGRAM, 1 TOTAL
     Route: 065
     Dates: start: 20221003, end: 20221003
  3. DIAZEPAM [Suspect]
     Active Substance: DIAZEPAM
     Indication: Product used for unknown indication
     Dosage: UNKNOWN
     Route: 065
     Dates: start: 202210, end: 20221003
  4. COCAINE [Suspect]
     Active Substance: COCAINE
     Indication: Product used for unknown indication
     Dosage: UNKNOWN
     Route: 065
     Dates: start: 2022, end: 202209
  5. ALPRAZOLAM [Suspect]
     Active Substance: ALPRAZOLAM
     Indication: Poisoning deliberate
     Dosage: 0.75 MILLIGRAM, 1 TOTAL
     Route: 065
     Dates: start: 20221003, end: 20221003
  6. CANNABIS SATIVA SUBSP. INDICA TOP [Suspect]
     Active Substance: CANNABIS SATIVA SUBSP. INDICA TOP
     Indication: Product used for unknown indication
     Dosage: UNKNOWN
     Route: 065
     Dates: start: 2022, end: 202209
  7. PREGABALIN [Suspect]
     Active Substance: PREGABALIN
     Indication: Poisoning deliberate
     Dosage: 100 MILLIGRAM, 1 TOTAL
     Route: 065
     Dates: start: 20221003, end: 20221003
  8. HEROIN [Suspect]
     Active Substance: DIAMORPHINE
     Indication: Product used for unknown indication
     Dosage: UNK
     Route: 065
     Dates: start: 2022, end: 202209

REACTIONS (3)
  - Poisoning deliberate [Recovered/Resolved]
  - Withdrawal syndrome [Recovering/Resolving]
  - Drug abuse [Recovering/Resolving]

NARRATIVE: CASE EVENT DATE: 20220101
